FAERS Safety Report 14640824 (Version 1)
Quarter: 2018Q1

REPORT INFORMATION
  Report Type: Spontaneous
  Country: US (occurrence: US)
  Receive Date: 20180314
  Receipt Date: 20180314
  Transmission Date: 20180509
  Serious: Yes (Hospitalization)
  Sender: FDA-Public Use
  Company Number: None

PATIENT
  Sex: Female

DRUGS (7)
  1. LOMOTIL 2.5MG [Concomitant]
  2. NEXIUM [Concomitant]
     Active Substance: ESOMEPRAZOLE MAGNESIUM
  3. PLAVIX [Concomitant]
     Active Substance: CLOPIDOGREL BISULFATE
  4. CYCLOBENZAPRINE 10MG [Concomitant]
  5. ZETIA [Concomitant]
     Active Substance: EZETIMIBE
  6. SIMPONI [Suspect]
     Active Substance: GOLIMUMAB
     Indication: ANKYLOSING SPONDYLITIS
     Dosage: ?          OTHER FREQUENCY:MONTHLY;?
     Route: 058
     Dates: start: 20130218
  7. ATENOLOL 25MG [Concomitant]
     Active Substance: ATENOLOL

REACTIONS (5)
  - Drug ineffective [None]
  - Arthralgia [None]
  - Pneumonia [None]
  - Condition aggravated [None]
  - Back pain [None]
